FAERS Safety Report 20420819 (Version 1)
Quarter: 2022Q1

REPORT INFORMATION
  Report Type: Spontaneous
  Country: US (occurrence: None)
  Receive Date: 20220203
  Receipt Date: 20220203
  Transmission Date: 20220423
  Serious: Yes (Hospitalization)
  Sender: FDA-Public Use
  Company Number: None

PATIENT
  Age: 4 Year
  Sex: Male
  Weight: 15.1 kg

DRUGS (4)
  1. CAMPTOSAR [Suspect]
     Active Substance: IRINOTECAN HYDROCHLORIDE
     Dates: end: 20220107
  2. LEUKINE [Suspect]
     Active Substance: SARGRAMOSTIM
     Dosage: OTHER QUANTITY : 1172.5 MCG;?
     Dates: end: 20220114
  3. TEMOZOLOMIDE [Suspect]
     Active Substance: TEMOZOLOMIDE
     Dates: end: 20220107
  4. DINUTUXIMAB [Suspect]
     Active Substance: DINUTUXIMAB
     Dosage: OTHER QUANTITY : 42.9 MG;?
     Dates: end: 20220107

REACTIONS (5)
  - Hypertension [None]
  - Hypokalaemia [None]
  - Dehydration [None]
  - Thrombocytopenia [None]
  - SARS-CoV-2 test positive [None]

NARRATIVE: CASE EVENT DATE: 20220118
